FAERS Safety Report 5277992-4 (Version None)
Quarter: 2007Q1

REPORT INFORMATION
  Report Type: 
  Country: None (occurrence: None)
  Receive Date: 20070321
  Receipt Date: 20070306
  Transmission Date: 20070707
  Serious: Yes (Hospitalization)
  Sender: FDA-Public Use
  Company Number: 2007AL000928

PATIENT
  Age: 75 Year
  Sex: Female

DRUGS (8)
  1. METFORMIN HYDROCHLORIDE [Suspect]
     Indication: DIABETES MELLITUS NON-INSULIN-DEPENDENT
     Dosage: 2 GM; QD; PO
     Route: 048
  2. GLIPIZIDE [Concomitant]
  3. ENALAPRIL MALEATE [Concomitant]
  4. WARFARIN SODIUM [Concomitant]
  5. DIURETICS [Concomitant]
  6. THYROXIN [Concomitant]
  7. OLANZAPINE [Concomitant]
  8. ATORVASTATIN CALCIUM [Concomitant]

REACTIONS (16)
  - ACIDOSIS [None]
  - AGITATION [None]
  - BLOOD CREATINE INCREASED [None]
  - BLOOD GLUCOSE DECREASED [None]
  - BLOOD LACTIC ACID INCREASED [None]
  - BLOOD POTASSIUM INCREASED [None]
  - BLOOD PRESSURE SYSTOLIC DECREASED [None]
  - CARDIOPULMONARY FAILURE [None]
  - CONTINUOUS HAEMODIAFILTRATION [None]
  - DECREASED APPETITE [None]
  - DISORIENTATION [None]
  - HYPERVENTILATION [None]
  - HYPOTHERMIA [None]
  - LETHARGY [None]
  - NO THERAPEUTIC RESPONSE [None]
  - SOMNOLENCE [None]
